FAERS Safety Report 9275917 (Version 1)
Quarter: 2013Q2

REPORT INFORMATION
  Report Type: Report from Study
  Country: US (occurrence: US)
  Receive Date: 20130507
  Receipt Date: 20130507
  Transmission Date: 20140414
  Serious: Yes (Hospitalization, Other)
  Sender: FDA-Public Use
  Company Number: US-ABBOTT-13P-163-1083764-00

PATIENT
  Age: 41 Year
  Sex: Female
  Weight: 128.03 kg

DRUGS (6)
  1. HUMIRA [Suspect]
     Indication: CROHN^S DISEASE
     Route: 058
     Dates: start: 201301, end: 201301
  2. HUMIRA [Suspect]
     Route: 058
     Dates: start: 201301, end: 201301
  3. HUMIRA [Suspect]
     Route: 058
     Dates: start: 201302, end: 201302
  4. HUMIRA [Suspect]
     Route: 058
     Dates: start: 20130417
  5. LISINOPRIL [Concomitant]
     Indication: HYPERTENSION
  6. FLUOXETINE [Concomitant]
     Indication: DEPRESSION

REACTIONS (12)
  - Abdominal adhesions [Recovered/Resolved]
  - Abdominal pain [Recovered/Resolved]
  - Nausea [Recovered/Resolved]
  - Diarrhoea [Recovered/Resolved]
  - Vomiting [Recovered/Resolved]
  - Intestinal stenosis [Recovered/Resolved]
  - Cellulitis [Not Recovered/Not Resolved]
  - Wound [Not Recovered/Not Resolved]
  - Wound dehiscence [Not Recovered/Not Resolved]
  - Wound secretion [Not Recovered/Not Resolved]
  - Infusion site extravasation [Recovered/Resolved]
  - Impaired healing [Unknown]
